FAERS Safety Report 4537267-5 (Version None)
Quarter: 2004Q4

REPORT INFORMATION
  Report Type: 
  Country: None (occurrence: None)
  Receive Date: 20041223
  Receipt Date: 20041220
  Transmission Date: 20050328
  Serious: Yes (Other)
  Sender: FDA-Public Use
  Company Number: PHFR2004GB04648

PATIENT
  Sex: Female

DRUGS (3)
  1. TERBINAFINE HCL [Suspect]
     Indication: NAIL TINEA
     Route: 048
     Dates: start: 20040819, end: 20040901
  2. CALCIUM WITH VITAMIN D [Concomitant]
  3. PREMPAK [Suspect]

REACTIONS (3)
  - ANTINUCLEAR ANTIBODY POSITIVE [None]
  - PHOTOSENSITIVE RASH [None]
  - RASH PRURITIC [None]
